FAERS Safety Report 8362029-0 (Version None)
Quarter: 2012Q2

REPORT INFORMATION
  Report Type: 
  Country: None (occurrence: None)
  Receive Date: 20120515
  Receipt Date: 20120509
  Transmission Date: 20120825
  Serious: No
  Sender: FDA-Public Use
  Company Number: FR-PFIZER INC-2012018701

PATIENT
  Age: 80 Year
  Sex: Female

DRUGS (1)
  1. XALATAN [Suspect]
     Indication: GLAUCOMA
     Dosage: 1 GTT, 1X/DAY
     Dates: start: 20111001, end: 20111001

REACTIONS (3)
  - C-REACTIVE PROTEIN INCREASED [None]
  - RED BLOOD CELL SEDIMENTATION RATE INCREASED [None]
  - TRANSAMINASES INCREASED [None]
